FAERS Safety Report 5136349-7 (Version None)
Quarter: 2006Q4

REPORT INFORMATION
  Report Type: 
  Country: None (occurrence: None)
  Receive Date: 20061027
  Receipt Date: 20050621
  Transmission Date: 20070319
  Serious: Yes (Disabling, Other)
  Sender: FDA-Public Use
  Company Number: US-MERCK-0506USA03143

PATIENT
  Age: 62 Year
  Sex: Female
  Weight: 61 kg

DRUGS (10)
  1. FOSAMAX [Suspect]
     Indication: OSTEOPENIA
     Route: 048
     Dates: start: 19990808, end: 20010102
  2. FOSAMAX [Suspect]
     Route: 048
     Dates: start: 20010103
  3. PREMARIN [Concomitant]
     Route: 065
  4. PRINZIDE [Concomitant]
     Route: 048
  5. FLOVENT [Concomitant]
     Route: 065
  6. VALIUM [Concomitant]
     Route: 065
  7. AMBIEN [Concomitant]
     Route: 065
  8. SPIRIVA [Concomitant]
     Route: 065
  9. REQUIP [Concomitant]
     Route: 065
  10. CELEBREX [Concomitant]
     Route: 065

REACTIONS (8)
  - GINGIVAL PAIN [None]
  - GINGIVAL SWELLING [None]
  - IMPAIRED HEALING [None]
  - INFLAMMATION [None]
  - OSTEOMYELITIS CHRONIC [None]
  - OSTEONECROSIS [None]
  - PRIMARY SEQUESTRUM [None]
  - TOOTH EXTRACTION [None]
